FAERS Safety Report 7429087-9 (Version None)
Quarter: 2011Q2

REPORT INFORMATION
  Report Type: 
  Country: None (occurrence: None)
  Receive Date: 20110421
  Receipt Date: 20110415
  Transmission Date: 20111010
  Serious: Yes (Other)
  Sender: FDA-Public Use
  Company Number: ES-ROCHE-771885

PATIENT
  Sex: Female
  Weight: 78 kg

DRUGS (7)
  1. METHOTREXATE [Concomitant]
     Indication: RHEUMATOID ARTHRITIS
     Route: 058
  2. ENALAPRIL MALEATE [Concomitant]
     Indication: HYPERTENSION
     Dosage: FREQUENCY: 24 HOUR
     Route: 048
  3. FOLIC ACID [Concomitant]
     Dosage: FREQUENCY: 24 HOUR
     Route: 048
  4. TOCILIZUMAB [Suspect]
     Indication: RHEUMATOID ARTHRITIS
     Route: 042
     Dates: start: 20100211
  5. NAPROXEN [Concomitant]
     Indication: RHEUMATOID ARTHRITIS
     Dosage: FREQUENCY: 12 HOUR
     Route: 048
  6. METHYLPREDNISOLONE [Concomitant]
     Indication: RHEUMATOID ARTHRITIS
     Dosage: FREQUENCY: 24 HOUR
     Route: 048
  7. ATORVASTATIN [Concomitant]
     Dosage: FREQUENCY: 24 HOUR

REACTIONS (1)
  - INTRAOCULAR PRESSURE INCREASED [None]
